FAERS Safety Report 24217289 (Version 6)
Quarter: 2024Q4

REPORT INFORMATION
  Report Type: Report from Study
  Country: CA (occurrence: CA)
  Receive Date: 20240816
  Receipt Date: 20241218
  Transmission Date: 20250115
  Serious: Yes (Hospitalization, Other)
  Sender: JOHNSON AND JOHNSON
  Company Number: CA-JNJFOC-20240601577

PATIENT
  Age: 22 Year
  Sex: Female
  Weight: 62 kg

DRUGS (5)
  1. REMICADE [Suspect]
     Active Substance: INFLIXIMAB
     Indication: Crohn^s disease
     Route: 041
  2. REMICADE [Suspect]
     Active Substance: INFLIXIMAB
     Route: 041
  3. REMICADE [Suspect]
     Active Substance: INFLIXIMAB
     Route: 041
     Dates: start: 20180315
  4. REMICADE [Suspect]
     Active Substance: INFLIXIMAB
     Route: 041
  5. REMICADE [Suspect]
     Active Substance: INFLIXIMAB
     Route: 041

REACTIONS (17)
  - Crohn^s disease [Recovering/Resolving]
  - Mania [Recovering/Resolving]
  - Alcohol abuse [Recovering/Resolving]
  - Overdose [Unknown]
  - Bronchitis [Recovering/Resolving]
  - Anal fissure [Not Recovered/Not Resolved]
  - Streptococcal infection [Recovered/Resolved]
  - Fatigue [Recovering/Resolving]
  - Mucous stools [Unknown]
  - Tachycardia [Recovered/Resolved]
  - Food allergy [Unknown]
  - Anxiety [Unknown]
  - Diarrhoea [Not Recovered/Not Resolved]
  - Therapeutic response decreased [Unknown]
  - Urinary tract infection [Not Recovered/Not Resolved]
  - Abdominal pain [Not Recovered/Not Resolved]
  - Haemorrhoids [Unknown]
